FAERS Safety Report 7466505-4 (Version None)
Quarter: 2011Q2

REPORT INFORMATION
  Report Type: 
  Country: None (occurrence: None)
  Receive Date: 20110509
  Receipt Date: 20100903
  Transmission Date: 20111010
  Serious: No
  Sender: FDA-Public Use
  Company Number: US-ALEXION-A201000868

PATIENT
  Sex: Female

DRUGS (4)
  1. SOLIRIS [Suspect]
     Indication: PAROXYSMAL NOCTURNAL HAEMOGLOBINURIA
     Dosage: 600 MG, QW X 4 WEEKS
     Route: 042
     Dates: start: 20100624, end: 20100715
  2. FOLIC ACID [Concomitant]
     Dosage: 1 MG, QD
  3. SOLIRIS [Suspect]
     Dosage: 900 MG, Q2W
     Route: 042
     Dates: start: 20100722
  4. IRON SULFATETHIAMIN COMPOUND TAB [Concomitant]
     Dosage: 325 MG, Q2W

REACTIONS (1)
  - BACK PAIN [None]
